FAERS Safety Report 5053227-2 (Version None)
Quarter: 2006Q3

REPORT INFORMATION
  Report Type: 
  Country: None (occurrence: None)
  Receive Date: 20060712
  Receipt Date: 20060623
  Transmission Date: 20061208
  Serious: Yes (Hospitalization, Other)
  Sender: FDA-Public Use
  Company Number: US200601002048

PATIENT
  Age: 34 Year
  Sex: Female
  Weight: 81.6 kg

DRUGS (9)
  1. ZYPREXA [Suspect]
     Indication: BIPOLAR DISORDER
     Dosage: SEE IMAGE
     Dates: start: 20030512, end: 20030702
  2. ZYPREXA [Suspect]
     Indication: BIPOLAR DISORDER
     Dosage: SEE IMAGE
     Dates: start: 20030702, end: 20030801
  3. VALTREX [Concomitant]
  4. ALBUTEROL SULFATE [Concomitant]
  5. SINGULAIR [Concomitant]
  6. CELEXA [Concomitant]
  7. PREMARIN [Concomitant]
  8. ALLEGRA [Concomitant]
  9. LORTAB [Concomitant]

REACTIONS (10)
  - BLOOD ALKALINE PHOSPHATASE INCREASED [None]
  - BLOOD CHOLESTEROL INCREASED [None]
  - BLOOD TRIGLYCERIDES INCREASED [None]
  - DIABETES MELLITUS [None]
  - DIABETIC COMA [None]
  - DIABETIC NEUROPATHY [None]
  - HYPERLIPIDAEMIA [None]
  - LETHARGY [None]
  - PNEUMONIA [None]
  - URINARY TRACT INFECTION [None]
